FAERS Safety Report 13611246 (Version 1)
Quarter: 2017Q2

REPORT INFORMATION
  Report Type: Spontaneous
  Country: US (occurrence: US)
  Receive Date: 20170604
  Receipt Date: 20170604
  Transmission Date: 20170830
  Serious: Yes (Other)
  Sender: FDA-Public Use
  Company Number: None

PATIENT
  Age: 58 Year
  Sex: Female
  Weight: 50.4 kg

DRUGS (8)
  1. CALCIUM [Concomitant]
     Active Substance: CALCIUM
  2. HRT. DIVIGEL [Concomitant]
  3. DHEA [Concomitant]
     Active Substance: PRASTERONE
  4. TESTOSTERONE. [Concomitant]
     Active Substance: TESTOSTERONE
  5. KERYDIN [Suspect]
     Active Substance: TAVABOROLE
     Indication: ONYCHOMYCOSIS
     Dosage: ?          QUANTITY:3 DROP(S);OTHER ROUTE:APPLIED TO TOE NAIL?
     Dates: start: 20160616, end: 20160624
  6. PROGESTERONE. [Concomitant]
     Active Substance: PROGESTERONE
  7. PREGNENOLONE [Concomitant]
     Active Substance: PREGNENOLONE
  8. VITAMIN D [Concomitant]
     Active Substance: CHOLECALCIFEROL

REACTIONS (1)
  - Joint swelling [None]

NARRATIVE: CASE EVENT DATE: 20160626
